FAERS Safety Report 21602569 (Version 1)
Quarter: 2022Q4

REPORT INFORMATION
  Report Type: Spontaneous
  Country: IT (occurrence: IT)
  Receive Date: 20221116
  Receipt Date: 20221116
  Transmission Date: 20230113
  Serious: Yes (Hospitalization)
  Sender: FDA-Public Use
  Company Number: IT-MYLANLABS-2022M1127132

PATIENT
  Age: 61 Year
  Sex: Female

DRUGS (10)
  1. PACLITAXEL [Suspect]
     Active Substance: PACLITAXEL
     Indication: Pancreatic carcinoma metastatic
     Dosage: UNK
     Route: 065
     Dates: start: 201712
  2. OXALIPLATIN [Suspect]
     Active Substance: OXALIPLATIN
     Indication: Pancreatic carcinoma metastatic
     Dosage: UNK, FOLFOX REGIMEN
     Route: 065
     Dates: start: 201807
  3. IRINOTECAN [Suspect]
     Active Substance: IRINOTECAN
     Indication: Pancreatic carcinoma metastatic
     Dosage: UNK, FOLFIRI REGIMEN
     Route: 065
     Dates: start: 201811
  4. GEMCITABINE [Suspect]
     Active Substance: GEMCITABINE
     Indication: Pancreatic carcinoma metastatic
     Dosage: UNK
     Route: 065
     Dates: start: 201712
  5. LEUCOVORIN [Suspect]
     Active Substance: LEUCOVORIN
     Indication: Pancreatic carcinoma metastatic
     Dosage: UNK, FOLFOX REGIMEN
     Route: 065
     Dates: start: 201807
  6. LEUCOVORIN [Suspect]
     Active Substance: LEUCOVORIN
     Dosage: UNK, FOLFIRI REGIMEN
     Route: 065
     Dates: start: 201811
  7. FLUOROURACIL [Suspect]
     Active Substance: FLUOROURACIL
     Indication: Pancreatic carcinoma metastatic
     Dosage: UNK, FOLFOX REGIMEN
     Route: 065
     Dates: start: 201807
  8. FLUOROURACIL [Suspect]
     Active Substance: FLUOROURACIL
     Dosage: UNK, FOLFIRI REGIMEN
     Route: 065
     Dates: start: 201811
  9. OLAPARIB [Suspect]
     Active Substance: OLAPARIB
     Indication: Pancreatic carcinoma metastatic
     Dosage: 400 MILLIGRAM, BID
     Route: 065
     Dates: start: 201902
  10. OLAPARIB [Suspect]
     Active Substance: OLAPARIB
     Dosage: 200 MILLIGRAM, BID
     Route: 065
     Dates: end: 201907

REACTIONS (1)
  - Drug ineffective [Unknown]
